FAERS Safety Report 14165995 (Version 2)
Quarter: 2017Q4

REPORT INFORMATION
  Report Type: Spontaneous
  Country: US (occurrence: US)
  Receive Date: 20171107
  Receipt Date: 20171110
  Transmission Date: 20180321
  Serious: Yes (Death, Other)
  Sender: FDA-Public Use
  Company Number: US-LUNDBECK-DKLU2039543

PATIENT
  Age: 85 Year
  Sex: Female

DRUGS (1)
  1. NORTHERA [Suspect]
     Active Substance: DROXIDOPA
     Indication: ORTHOSTATIC HYPOTENSION
     Route: 048
     Dates: start: 20160719, end: 20171030

REACTIONS (2)
  - Cerebrovascular accident [Fatal]
  - Hypotension [Unknown]

NARRATIVE: CASE EVENT DATE: 20171030
